FAERS Safety Report 8471951-6 (Version None)
Quarter: 2012Q2

REPORT INFORMATION
  Report Type: 
  Country: None (occurrence: None)
  Receive Date: 20120323
  Receipt Date: 20111115
  Transmission Date: 20120825
  Serious: Yes (Hospitalization)
  Sender: FDA-Public Use
  Company Number: 163-21880-11103221

PATIENT
  Age: 66 Year
  Sex: Male

DRUGS (3)
  1. REVLIMID [Suspect]
     Indication: MULTIPLE MYELOMA
     Dosage: 25 MG, DAILY X 21/28DAYS, PO
     Route: 048
     Dates: start: 20110201
  2. TRANSFUSION (BLOOD AND RELATED PRODUCTS) [Concomitant]
  3. LIPITOR [Concomitant]

REACTIONS (2)
  - CHEST PAIN [None]
  - ANGINA PECTORIS [None]
